FAERS Safety Report 21754149 (Version 2)
Quarter: 2023Q1

REPORT INFORMATION
  Report Type: Report from Study
  Country: US (occurrence: US)
  Receive Date: 20221220
  Receipt Date: 20230328
  Transmission Date: 20230418
  Serious: No
  Sender: FDA-Public Use
  Company Number: US-ABBVIE-4198643

PATIENT
  Sex: Female

DRUGS (3)
  1. SKYRIZI [Suspect]
     Active Substance: RISANKIZUMAB-RZAA
     Indication: Psoriasis
     Dosage: STRENGTH: 150 MG
     Route: 058
  2. SKYRIZI [Suspect]
     Active Substance: RISANKIZUMAB-RZAA
     Dosage: STRENGTH: 150 MG?WEEK 0
     Route: 058
  3. SKYRIZI [Suspect]
     Active Substance: RISANKIZUMAB-RZAA
     Dosage: STRENGTH: 150 MG?WEEK 4
     Route: 058

REACTIONS (6)
  - Psoriatic arthropathy [Unknown]
  - Drug ineffective [Unknown]
  - Psoriasis [Unknown]
  - Fibromyalgia [Unknown]
  - Dry skin [Unknown]
  - Injection site pain [Unknown]
